FAERS Safety Report 4494241-5 (Version None)
Quarter: 2005Q1

REPORT INFORMATION
  Report Type: 
  Country: None (occurrence: None)
  Receive Date: 20041102
  Receipt Date: 20031121
  Transmission Date: 20050727
  Serious: Yes (Hospitalization)
  Sender: FDA-Public Use
  Company Number: D01200301739

PATIENT
  Age: 58 Year
  Sex: Male

DRUGS (10)
  1. OXALIPLATIN [Suspect]
     Dosage: 85 MG/M2 Q2W INTRAVENOUS NOS
     Route: 042
     Dates: start: 20031112, end: 20031112
  2. FLUOROURACIL [Suspect]
     Dosage: 400 MG/M2 AS IV BOLUS THEN 600 MG/M2 AS 22 HOURS CONTINUOUS INFUSION D1-D2 Q2W INTRAVENOUS NOS
     Route: 042
     Dates: start: 20031112, end: 20031113
  3. SR57746 OR PLACEBO [Suspect]
     Indication: CHEMOTHERAPY NEUROTOXICITY ATTENUATION
     Dosage: 1 MG QD ORAL
     Route: 048
     Dates: start: 20030402, end: 20031119
  4. LEUCOVORIN CALCIUM [Suspect]
     Dosage: 200 MG/M2 AS 2 HOURS INFUSION ON D1-D2 Q2W INTRAVENOUS NOS
     Route: 042
     Dates: start: 20031112, end: 20031113
  5. RAMIPRIL [Concomitant]
  6. GRANISETRON [Concomitant]
  7. METOCLOPRAMIDE [Concomitant]
  8. DEXAMETHASONE [Concomitant]
  9. LEVOSULPIRIDE [Concomitant]
  10. TROPISETRON [Concomitant]

REACTIONS (14)
  - ACUTE CORONARY SYNDROME [None]
  - BLOOD MAGNESIUM INCREASED [None]
  - CORONARY ARTERY ATHEROSCLEROSIS [None]
  - CORONARY ARTERY DISEASE [None]
  - CORONARY ARTERY STENOSIS [None]
  - HAEMATOCRIT DECREASED [None]
  - HAEMOGLOBIN DECREASED [None]
  - HYPOKINESIA [None]
  - LOW DENSITY LIPOPROTEIN INCREASED [None]
  - NEUTROPHIL COUNT DECREASED [None]
  - PLATELET COUNT DECREASED [None]
  - SINUS BRADYCARDIA [None]
  - VENTRICULAR HYPERTROPHY [None]
  - WHITE BLOOD CELL COUNT DECREASED [None]
